FAERS Safety Report 5072667-9 (Version None)
Quarter: 2006Q3

REPORT INFORMATION
  Report Type: 
  Country: None (occurrence: None)
  Receive Date: 20060807
  Receipt Date: 20060801
  Transmission Date: 20061208
  Serious: Yes (Other)
  Sender: FDA-Public Use
  Company Number: DE-GLAXOSMITHKLINE-D0050508A

PATIENT

DRUGS (3)
  1. EPIVIR [Suspect]
     Route: 065
  2. RETROVIR [Suspect]
     Route: 065
  3. SUSTIVA [Concomitant]
     Route: 065

REACTIONS (1)
  - THROMBOTIC THROMBOCYTOPENIC PURPURA [None]
